FAERS Safety Report 9069148 (Version 1)
Quarter: 2013Q1

REPORT INFORMATION
  Report Type: Spontaneous
  Country: CA (occurrence: None)
  Receive Date: 20130122
  Receipt Date: 20130122
  Transmission Date: 20140127
  Serious: Yes (Other)
  Sender: FDA-Public Use
  Company Number: 1556499

PATIENT
  Sex: Female

DRUGS (5)
  1. HEPARIN SODIUM [Suspect]
     Indication: CAROTID ANGIOPLASTY
     Dosage: (NOT OTHERWISE SPECIFIED)
     Route: 042
  2. HEPARIN SODIUM [Suspect]
     Indication: STENT PLACEMENT
     Dosage: (NOT OTHERWISE SPECIFIED)
     Route: 042
  3. HEPARIN SODIUM [Suspect]
     Indication: FLUSHING
     Dosage: (NOT OTHERWISE SPECIFIED)
     Route: 042
  4. HEPARIN SODIUM [Suspect]
     Indication: THROMBOSIS IN DEVICE
     Dosage: (NOT OTHERWISE SPECIFIED)
     Route: 042
  5. (ANESTHETICS) [Concomitant]

REACTIONS (9)
  - Hemiparesis [None]
  - Device occlusion [None]
  - Thrombosis in device [None]
  - Hypoaesthesia [None]
  - Hypoaesthesia [None]
  - Visual field defect [None]
  - Heparin-induced thrombocytopenia [None]
  - Heparin-induced thrombocytopenia [None]
  - Infarction [None]
